FAERS Safety Report 6217693-9 (Version None)
Quarter: 2009Q2

REPORT INFORMATION
  Report Type: 
  Country: None (occurrence: None)
  Receive Date: 20090608
  Receipt Date: 20090526
  Transmission Date: 20091009
  Serious: Yes (Hospitalization)
  Sender: FDA-Public Use
  Company Number: AU-PFIZER INC-2009221949

PATIENT
  Age: 70 Year

DRUGS (6)
  1. SERTRALINE HCL [Suspect]
     Indication: MAJOR DEPRESSION
     Dosage: 200 MG, UNK
  2. SERTRALINE HCL [Suspect]
     Indication: GENERALISED ANXIETY DISORDER
  3. ZIPRASIDONE HCL [Suspect]
     Indication: MAJOR DEPRESSION
     Dosage: 40 MG, UNK
  4. ZIPRASIDONE HCL [Suspect]
     Indication: GENERALISED ANXIETY DISORDER
  5. VALPROATE SODIUM [Suspect]
     Indication: MAJOR DEPRESSION
     Dosage: 400 MG, UNK
  6. VALPROATE SODIUM [Suspect]
     Indication: GENERALISED ANXIETY DISORDER

REACTIONS (4)
  - ANXIETY [None]
  - DEPRESSED MOOD [None]
  - DISEASE RECURRENCE [None]
  - SUICIDAL IDEATION [None]
